FAERS Safety Report 6872454-2 (Version None)
Quarter: 2010Q3

REPORT INFORMATION
  Report Type: 
  Country: None (occurrence: None)
  Receive Date: 20100723
  Receipt Date: 20090108
  Transmission Date: 20110219
  Serious: Yes (Other)
  Sender: FDA-Public Use
  Company Number: US-PFIZER INC-2008078400

PATIENT
  Sex: Female
  Weight: 63.6 kg

DRUGS (3)
  1. VARENICLINE TARTRATE [Suspect]
     Route: 048
     Dates: start: 20080301, end: 20080801
  2. STRATTERA [Suspect]
  3. ANTIDEPRESSANTS [Concomitant]

REACTIONS (8)
  - ABNORMAL DREAMS [None]
  - DRUG INEFFECTIVE [None]
  - FEELING ABNORMAL [None]
  - HALLUCINATION [None]
  - HALLUCINATION, AUDITORY [None]
  - MIDDLE INSOMNIA [None]
  - NIGHTMARE [None]
  - PSYCHIATRIC SYMPTOM [None]
